FAERS Safety Report 8776870 (Version 1)
Quarter: 2012Q4

REPORT INFORMATION
  Report Type: 
  Country: US (occurrence: US)
  Receive Date: 20120911
  Receipt Date: 20120911
  Transmission Date: 20130627
  Serious: Yes (Hospitalization)
  Sender: FDA-Public Use
  Company Number: 2012SP002511

PATIENT
  Age: 76 Year
  Sex: Female

DRUGS (6)
  1. LUNESTA [Suspect]
     Indication: INSOMNIA
     Route: 048
     Dates: start: 2008
  2. PRADAXA [Concomitant]
     Indication: ANTICOAGULANT THERAPY
     Dates: start: 2010
  3. CRESTOR [Concomitant]
     Indication: BLOOD CHOLESTEROL
  4. METOPROLOL [Concomitant]
     Indication: HYPERTENSION
  5. SYNTHROID [Concomitant]
     Indication: THYROID DISORDER
     Dates: start: 2007
  6. TYLENOL PM [Concomitant]
     Indication: INSOMNIA

REACTIONS (6)
  - Cerebrovascular accident [Recovered/Resolved]
  - Atrial fibrillation [Recovered/Resolved]
  - Drug dependence [Not Recovered/Not Resolved]
  - Insomnia [Not Recovered/Not Resolved]
  - Anxiety [Not Recovered/Not Resolved]
  - Blood pressure increased [Not Recovered/Not Resolved]
